FAERS Safety Report 7631358-8 (Version None)
Quarter: 2011Q3

REPORT INFORMATION
  Report Type: 
  Country: None (occurrence: None)
  Receive Date: 20110715
  Receipt Date: 20110630
  Transmission Date: 20111222
  Serious: Yes (Life-Threatening, Other)
  Sender: FDA-Public Use
  Company Number: ALL020110012

PATIENT
  Age: 32 Year
  Sex: Female

DRUGS (2)
  1. AZATHIOPRINE [Suspect]
     Indication: CROHN'S DISEASE
     Dosage: 200 MG,
  2. ALLOPURINOL [Suspect]
     Indication: CROHN'S DISEASE
     Dosage: 100 MG, ORAL
     Route: 048

REACTIONS (3)
  - DRUG INTERACTION [None]
  - MENINGITIS VIRAL [None]
  - LEUKOPENIA [None]
